FAERS Safety Report 4501803-5 (Version None)
Quarter: 2004Q3

REPORT INFORMATION
  Report Type: 
  Country: None (occurrence: None)
  Receive Date: 20040928
  Receipt Date: 20040601
  Transmission Date: 20050211
  Serious: No
  Sender: FDA-Public Use
  Company Number: 04P-163-0262489-00

PATIENT
  Age: 49 Year
  Sex: Female
  Weight: 89.8122 kg

DRUGS (9)
  1. HUMIRA [Suspect]
     Indication: RHEUMATOID ARTHRITIS
     Dosage: 40 MG 1 IN 2 WK SUBCUTANEOUS
     Route: 058
     Dates: start: 20040521
  2. PREDNISONE [Concomitant]
  3. LEFLUNOMIDE [Concomitant]
  4. FOLIC ACID [Concomitant]
  5. AMLODIPINE BESYLATE [Concomitant]
  6. CLOPIDOGREL BISULFATE [Concomitant]
  7. ZOCOR [Concomitant]
  8. PANTOPRAZOLE [Concomitant]
  9. ACETYLSALICYLIC ACID [Concomitant]

REACTIONS (2)
  - MYALGIA [None]
  - OEDEMA PERIPHERAL [None]
